FAERS Safety Report 20896848 (Version 1)
Quarter: 2022Q2

REPORT INFORMATION
  Report Type: Spontaneous
  Country: US (occurrence: None)
  Receive Date: 20220531
  Receipt Date: 20220531
  Transmission Date: 20220721
  Serious: No
  Sender: FDA-Public Use
  Company Number: None

PATIENT
  Age: 47 Year
  Sex: Female

DRUGS (4)
  1. TALTZ [Suspect]
     Active Substance: IXEKIZUMAB
     Indication: Guillain-Barre syndrome
     Dosage: OTHER FREQUENCY : EVERY4WEEKS;?
     Route: 058
     Dates: start: 202105
  2. TALTZ [Suspect]
     Active Substance: IXEKIZUMAB
     Indication: Ankylosing spondylitis
  3. TALTZ [Suspect]
     Active Substance: IXEKIZUMAB
     Indication: Spinal osteoarthritis
  4. TALTZ [Suspect]
     Active Substance: IXEKIZUMAB
     Indication: Spinal osteoarthritis

REACTIONS (1)
  - Neuropathy peripheral [None]
